FAERS Safety Report 5336450-9 (Version None)
Quarter: 2007Q2

REPORT INFORMATION
  Report Type: 
  Country: None (occurrence: None)
  Receive Date: 20070523
  Receipt Date: 20070508
  Transmission Date: 20071010
  Serious: Yes (Other)
  Sender: FDA-Public Use
  Company Number: 2007JP001997

PATIENT
  Age: 32 Year
  Sex: Female

DRUGS (8)
  1. PROGRAF [Suspect]
     Indication: RENAL TRANSPLANT
  2. CYCLOPHOSPHAMIDE [Concomitant]
  3. MYCOPHENOLATE MOFETIL [Concomitant]
  4. PREDNISONE TAB [Concomitant]
  5. SIMULECT [Concomitant]
  6. ANTIBIOTICS [Concomitant]
  7. ANTIFUNGALS [Concomitant]
  8. ANTIVIRALS NOS [Concomitant]

REACTIONS (3)
  - BONE MARROW FAILURE [None]
  - DIALYSIS [None]
  - RENAL IMPAIRMENT [None]
